FAERS Safety Report 9326194 (Version 1)
Quarter: 2013Q2

REPORT INFORMATION
  Report Type: Spontaneous
  Country: ES (occurrence: ES)
  Receive Date: 20130604
  Receipt Date: 20130604
  Transmission Date: 20140414
  Serious: Yes (Other)
  Sender: FDA-Public Use
  Company Number: ES-PFIZER INC-2013164367

PATIENT
  Age: 69 Year
  Sex: Male

DRUGS (1)
  1. TYGACIL [Suspect]
     Indication: BACTERAEMIA
     Dosage: 50 MG, 2X/DAY
     Route: 042
     Dates: start: 20130130, end: 20130203

REACTIONS (2)
  - Thrombocytopenia [Recovered/Resolved]
  - Neutropenia [Recovered/Resolved]
